FAERS Safety Report 4375459-9 (Version None)
Quarter: 2004Q2

REPORT INFORMATION
  Report Type: 
  Country: None (occurrence: None)
  Receive Date: 20040607
  Receipt Date: 20040524
  Transmission Date: 20050107
  Serious: Yes (Hospitalization, Other)
  Sender: FDA-Public Use
  Company Number: 2004021861

PATIENT
  Age: 11 Year
  Sex: Female

DRUGS (2)
  1. ZITHROMAX [Suspect]
     Indication: PHARYNGITIS
     Dosage: 500 MG (1 D), ORAL
     Route: 048
     Dates: start: 20040324, end: 20040329
  2. ZITHROMAX [Suspect]
     Indication: PHARYNGITIS STREPTOCOCCAL
     Dosage: 500 MG (1 D), ORAL
     Route: 048
     Dates: start: 20040324, end: 20040329

REACTIONS (4)
  - CONVULSION [None]
  - DYSKINESIA [None]
  - RHEUMATIC FEVER [None]
  - TONIC CLONIC MOVEMENTS [None]
